FAERS Safety Report 4818422-3 (Version None)
Quarter: 2005Q3

REPORT INFORMATION
  Report Type: 
  Country: None (occurrence: None)
  Receive Date: 20050929
  Receipt Date: 20050714
  Transmission Date: 20060218
  Serious: No
  Sender: FDA-Public Use
  Company Number: 05P-163-0305753-00

PATIENT
  Age: 55 Year
  Sex: Female
  Weight: 74.8435 kg

DRUGS (11)
  1. HUMIRA [Suspect]
     Indication: RHEUMATOID ARTHRITIS
     Dosage: 40 MG, 1 IN 2 WK, SUBCUTANEOUS
     Route: 058
     Dates: start: 20041007, end: 20050714
  2. DEPAKOTE ER [Concomitant]
  3. RISPERIDONE [Concomitant]
  4. CLINAPRIL [Concomitant]
  5. ATORVASTATIN CALCIUM [Concomitant]
  6. SULFASALAZINE [Concomitant]
  7. LEFLUNOMIDE [Concomitant]
  8. GLIBENCLAMIDE [Concomitant]
  9. MULTI-VITAMINS [Concomitant]
  10. METFORMIN HCL [Concomitant]
  11. TRILISATE [Concomitant]

REACTIONS (3)
  - HYPOAESTHESIA [None]
  - NASOPHARYNGITIS [None]
  - PARAESTHESIA [None]
